FAERS Safety Report 5635657-0 (Version None)
Quarter: 2008Q1

REPORT INFORMATION
  Report Type: 
  Country: None (occurrence: None)
  Receive Date: 20080220
  Receipt Date: 20080212
  Transmission Date: 20080703
  Serious: Yes (Other)
  Sender: FDA-Public Use
  Company Number: CHNY2008BR00865

PATIENT
  Age: 23 Year
  Sex: Female
  Weight: 74 kg

DRUGS (1)
  1. LAMISIL [Suspect]
     Indication: MYCOSIS FUNGOIDES
     Dosage: QD, TOPICAL
     Route: 061

REACTIONS (8)
  - APPLICATION SITE ERYTHEMA [None]
  - APPLICATION SITE PAIN [None]
  - BLISTER [None]
  - CONDITION AGGRAVATED [None]
  - DRY SKIN [None]
  - MYCOSIS FUNGOIDES [None]
  - PRURITUS [None]
  - RASH PAPULAR [None]
